FAERS Safety Report 13456650 (Version 5)
Quarter: 2017Q4

REPORT INFORMATION
  Report Type: Spontaneous
  Country: IE (occurrence: IE)
  Receive Date: 20170419
  Receipt Date: 20171106
  Transmission Date: 20180320
  Serious: Yes (Other)
  Sender: FDA-Public Use
  Company Number: IE-JNJFOC-20170416792

PATIENT
  Sex: Female
  Weight: 59.2 kg

DRUGS (7)
  1. SIMPONI [Suspect]
     Active Substance: GOLIMUMAB
     Indication: OSTEOARTHRITIS
     Route: 058
  2. METHOTREXATE. [Suspect]
     Active Substance: METHOTREXATE
     Indication: ARTHRITIS
     Route: 048
  3. SIMPONI [Suspect]
     Active Substance: GOLIMUMAB
     Indication: OSTEOARTHRITIS
     Dosage: 8 MONTHS OF THEARPY
     Route: 058
     Dates: start: 20160930
  4. METHOTREXATE. [Suspect]
     Active Substance: METHOTREXATE
     Indication: ARTHRITIS
     Route: 048
  5. METHOTREXATE. [Suspect]
     Active Substance: METHOTREXATE
     Indication: ARTHRITIS
     Route: 048
  6. SIMPONI [Suspect]
     Active Substance: GOLIMUMAB
     Indication: ARTHRITIS
     Route: 058
  7. SIMPONI [Suspect]
     Active Substance: GOLIMUMAB
     Indication: ARTHRITIS
     Dosage: 8 MONTHS OF THEARPY
     Route: 058
     Dates: start: 20160930

REACTIONS (6)
  - Drug ineffective [Recovered/Resolved]
  - Nausea [Recovered/Resolved]
  - Arthritis [Recovered/Resolved]
  - Needle issue [Unknown]
  - Injection site pain [Unknown]
  - Arthritis [Unknown]

NARRATIVE: CASE EVENT DATE: 2017
